FAERS Safety Report 9729183 (Version 1)
Quarter: 2013Q4

REPORT INFORMATION
  Report Type: Spontaneous
  Country: US (occurrence: US)
  Receive Date: 20131204
  Receipt Date: 20131204
  Transmission Date: 20140711
  Serious: Yes (Life-Threatening, Disabling)
  Sender: FDA-Public Use
  Company Number: US-BAYER-2013-147092

PATIENT
  Sex: Female

DRUGS (7)
  1. YAZ [Suspect]
  2. YASMIN [Suspect]
  3. OCELLA [Suspect]
  4. BEYAZ [Suspect]
  5. SAFYRAL [Suspect]
  6. GIANVI [Suspect]
  7. ZARAH [Suspect]

REACTIONS (9)
  - Thrombosis [None]
  - Cerebrovascular accident [None]
  - Injury [None]
  - Emotional distress [None]
  - Anhedonia [None]
  - Anxiety [None]
  - General physical health deterioration [None]
  - Pain [None]
  - Pain [None]
